FAERS Safety Report 8567024-4 (Version None)
Quarter: 2012Q3

REPORT INFORMATION
  Report Type: 
  Country: None (occurrence: None)
  Receive Date: 20120730
  Receipt Date: 20120730
  Transmission Date: 20120928
  Serious: No
  Sender: FDA-Public Use
  Company Number: None

PATIENT
  Sex: Female

DRUGS (1)
  1. PEGASYS [Suspect]
     Dosage: 180 MCG/0.5 ML, SC, INJECT 180 MCG(O.5ML) EVERY WEEK ^KEEP REFRIGERATED^, SUBCUTANEOUS
     Route: 058
     Dates: start: 20120712

REACTIONS (1)
  - HAEMATOCHEZIA [None]
